FAERS Safety Report 6062155-5 (Version None)
Quarter: 2009Q1

REPORT INFORMATION
  Report Type: 
  Country: None (occurrence: None)
  Receive Date: 20090129
  Receipt Date: 20090129
  Transmission Date: 20090719
  Serious: Yes (Other)
  Sender: FDA-Public Use
  Company Number: None

PATIENT
  Sex: Female
  Weight: 46.7205 kg

DRUGS (1)
  1. OCELLA BARR [Suspect]
     Indication: CONTRACEPTION
     Dosage: 1 TAB QD QD PO
     Route: 048
     Dates: start: 20081225, end: 20090110

REACTIONS (2)
  - BREAST TENDERNESS [None]
  - PALPITATIONS [None]
